FAERS Safety Report 14208589 (Version 1)
Quarter: 2017Q4

REPORT INFORMATION
  Report Type: Spontaneous
  Country: US (occurrence: US)
  Receive Date: 20171121
  Receipt Date: 20171121
  Transmission Date: 20180321
  Serious: No
  Sender: FDA-Public Use
  Company Number: US-BAYER-2017-224846

PATIENT
  Age: 24 Year
  Sex: Female

DRUGS (2)
  1. MIRENA [Suspect]
     Active Substance: LEVONORGESTREL
     Indication: PREMENSTRUAL SYNDROME
     Dosage: 20 MCG/24HR, CONT
     Route: 015
     Dates: start: 20171027
  2. MIRENA [Suspect]
     Active Substance: LEVONORGESTREL
     Indication: GENITAL HAEMORRHAGE

REACTIONS (5)
  - Back pain [None]
  - Dizziness [None]
  - Off label use [None]
  - Abdominal pain upper [None]
  - Product use in unapproved indication [None]

NARRATIVE: CASE EVENT DATE: 20171027
